FAERS Safety Report 6656825-5 (Version None)
Quarter: 2010Q1

REPORT INFORMATION
  Report Type: 
  Country: None (occurrence: None)
  Receive Date: 20100325
  Receipt Date: 20100316
  Transmission Date: 20100710
  Serious: Yes (Hospitalization)
  Sender: FDA-Public Use
  Company Number: TPA2010A01139

PATIENT
  Age: 65 Year
  Sex: Female
  Weight: 62.5964 kg

DRUGS (12)
  1. ACTOS [Suspect]
     Indication: TYPE 2 DIABETES MELLITUS
     Dosage: 30 MG, 1 IN 1 D, ORAL
     Route: 048
     Dates: start: 20090904, end: 20091211
  2. FOREST LABORATORIES STUDY DRUG (ALL OTHER THERAPEUTIC PRODUCTS) [Suspect]
     Dates: start: 20091202, end: 20091209
  3. METFORMIN HCL [Concomitant]
  4. FLUOXETINE [Concomitant]
  5. VITAMIN D [Concomitant]
  6. THYROMULTIVITAMIN (ALL OTHER THERAPEUTIC PRODUCTS) [Concomitant]
  7. MAGNESIUM (MAGNESIUM) [Concomitant]
  8. TYLENOL [Concomitant]
  9. OMEGA FATTY ACID (ALL OTHER THERAPEUTIC PRODUCTS) [Concomitant]
  10. NIACIN [Concomitant]
  11. ATENOLOL [Concomitant]
  12. EPA-DHA OMEGA 3 FATTY ACID (ALL OTHER THERAPEUTIC PRODUCTS) [Concomitant]

REACTIONS (5)
  - CARDIAC STRESS TEST ABNORMAL [None]
  - CORONARY ARTERY DISEASE [None]
  - CORONARY ARTERY STENOSIS [None]
  - CORONARY OSTIAL STENOSIS [None]
  - EJECTION FRACTION DECREASED [None]
